FAERS Safety Report 23058628 (Version 1)
Quarter: 2023Q4

REPORT INFORMATION
  Report Type: Report from Study
  Country: US (occurrence: None)
  Receive Date: 20231012
  Receipt Date: 20231012
  Transmission Date: 20240110
  Serious: Yes (Other)
  Sender: FDA-Public Use
  Company Number: 2023A226666

PATIENT
  Sex: Male
  Weight: 71.7 kg

DRUGS (12)
  1. CALQUENCE [Suspect]
     Active Substance: ACALABRUTINIB
     Indication: Chronic lymphocytic leukaemia
     Route: 048
     Dates: start: 202210
  2. DIGOXIN [Concomitant]
     Active Substance: DIGOXIN
  3. ELIQUIS [Concomitant]
     Active Substance: APIXABAN
  4. FINASTERIDE [Concomitant]
     Active Substance: FINASTERIDE
  5. ACETAMINOPHEN [Concomitant]
     Active Substance: ACETAMINOPHEN
  6. VITAMINS [Concomitant]
     Active Substance: VITAMINS
  7. GLUCOSAMINE [Concomitant]
     Active Substance: GLUCOSAMINE
  8. VITAMIN D [Concomitant]
     Active Substance: VITAMIN D NOS
  9. SOTALOL [Concomitant]
     Active Substance: SOTALOL
  10. VITAMIN C [Concomitant]
     Active Substance: ASCORBIC ACID
  11. METAMUCIL [Concomitant]
     Active Substance: PLANTAGO SEED
  12. HYDROCORTISONE [Concomitant]
     Active Substance: HYDROCORTISONE

REACTIONS (3)
  - Abdominal mass [Unknown]
  - Drug ineffective [Unknown]
  - Product dose omission issue [Unknown]
